FAERS Safety Report 9875741 (Version 4)
Quarter: 2014Q1

REPORT INFORMATION
  Report Type: Spontaneous
  Country: AU (occurrence: None)
  Receive Date: 20140204
  Receipt Date: 20140228
  Transmission Date: 20141002
  Serious: Yes (Other)
  Sender: FDA-Public Use
  Company Number: AUR-APL-2014-01119

PATIENT
  Age: 17 Year
  Sex: Female

DRUGS (2)
  1. OLANZAPINE (OLANZAPINE) [Suspect]
     Indication: SCHIZOPHRENIA
  2. QUETIAPINE (QUETIAPINE) [Suspect]
     Indication: SCHIZOPHRENIA

REACTIONS (4)
  - Dizziness [None]
  - Tardive dyskinesia [None]
  - Fall [None]
  - Therapy responder [None]
